FAERS Safety Report 11137171 (Version 2)
Quarter: 2015Q2

REPORT INFORMATION
  Report Type: Spontaneous
  Country: US (occurrence: US)
  Receive Date: 20150526
  Receipt Date: 20150611
  Transmission Date: 20150821
  Serious: No
  Sender: FDA-Public Use
  Company Number: US-ASTRAZENECA-2015SE46531

PATIENT
  Sex: Female

DRUGS (2)
  1. ARIMIDEX [Suspect]
     Active Substance: ANASTROZOLE
     Route: 048
  2. ARIMIDEX [Suspect]
     Active Substance: ANASTROZOLE
     Dosage: 1/8 OF THE DOSE
     Route: 048

REACTIONS (4)
  - Malaise [Unknown]
  - Lip swelling [Unknown]
  - Drug hypersensitivity [Unknown]
  - Intentional product misuse [Unknown]
